FAERS Safety Report 24293956 (Version 2)
Quarter: 2024Q3

REPORT INFORMATION
  Report Type: Spontaneous
  Country: US (occurrence: US)
  Receive Date: 20240906
  Receipt Date: 20240918
  Transmission Date: 20241016
  Serious: No
  Sender: PHARMING GROUP
  Company Number: US-PHARMING-PHAUS2024000747

PATIENT

DRUGS (1)
  1. RUCONEST [Suspect]
     Active Substance: CONESTAT ALFA
     Indication: Hereditary angioedema
     Dosage: 4200 IU, PREVENTATIVELY AND ON DEMAND
     Route: 042
     Dates: start: 2018

REACTIONS (2)
  - Pharyngitis streptococcal [Recovered/Resolved]
  - Product use in unapproved indication [Unknown]
